FAERS Safety Report 17550143 (Version 1)
Quarter: 2020Q1

REPORT INFORMATION
  Report Type: Spontaneous
  Country: JP (occurrence: JP)
  Receive Date: 20200317
  Receipt Date: 20200317
  Transmission Date: 20200409
  Serious: Yes (Other)
  Sender: FDA-Public Use
  Company Number: JP-PFIZER INC-2020108894

PATIENT
  Age: 9 Year
  Sex: Male
  Weight: 32.8 kg

DRUGS (13)
  1. DIAMOX SEQUELS [Concomitant]
     Active Substance: ACETAZOLAMIDE
     Dosage: 500 MG, UNK
  2. AMLODIN [Concomitant]
     Active Substance: AMLODIPINE BESYLATE
     Dosage: 2.5 MG, UNK
  3. LEUKERIN [Concomitant]
     Active Substance: MERCAPTOPURINE
     Dosage: 10 %, UNK
  4. LEUCOVORIN [CALCIUM FOLINATE] [Concomitant]
     Active Substance: LEUCOVORIN
     Dosage: 3 MG, UNK
  5. MEYLON [Concomitant]
     Active Substance: SODIUM BICARBONATE
     Dosage: 20 ML, UNK
  6. LEUNASE [Concomitant]
     Active Substance: ASPARAGINASE
  7. METHOTREXATE. [Suspect]
     Active Substance: METHOTREXATE
     Indication: T-CELL TYPE ACUTE LEUKAEMIA
     Dosage: 12 MG, DAILY
     Route: 041
     Dates: start: 20190917
  8. HEPARIN SODIUM. [Concomitant]
     Active Substance: HEPARIN SODIUM
     Dosage: UNK
  9. PREDONINE [PREDNISOLONE SODIUM SUCCINATE] [Concomitant]
     Active Substance: PREDNISOLONE SODIUM SUCCINATE
     Dosage: 10 MG, UNK
  10. CITOSOL [Concomitant]
     Active Substance: THIAMYLAL SODIUM
     Dosage: 0.5 G, UNK
  11. SOLITA-T3 [Concomitant]
     Active Substance: POTASSIUM CHLORIDE\SODIUM CHLORIDE\SODIUM LACTATE
     Dosage: 500 ML, UNK
  12. CYLOCIDE [Concomitant]
     Active Substance: CYTARABINE
     Dosage: 20 MG, UNK
  13. SOLU-CORTEF [Concomitant]
     Active Substance: HYDROCORTISONE SODIUM SUCCINATE
     Dosage: 100 MG, UNK

REACTIONS (6)
  - Drug reaction with eosinophilia and systemic symptoms [Unknown]
  - Erythema [Recovering/Resolving]
  - Pain [Unknown]
  - Skin exfoliation [Recovered/Resolved]
  - Multiple endocrine neoplasia [Recovering/Resolving]
  - Pigmentation disorder [Unknown]

NARRATIVE: CASE EVENT DATE: 20200116
